FAERS Safety Report 7301877-2 (Version None)
Quarter: 2011Q1

REPORT INFORMATION
  Report Type: 
  Country: None (occurrence: None)
  Receive Date: 20110218
  Receipt Date: 20110211
  Transmission Date: 20110831
  Serious: Yes (Hospitalization, Other)
  Sender: FDA-Public Use
  Company Number: RO-ABBOTT-11P-135-0704693-00

PATIENT
  Sex: Female
  Weight: 58 kg

DRUGS (15)
  1. FUROSEMID [Concomitant]
     Indication: HYPERTENSION
     Dosage: DAILY DOSE: 120MG
     Route: 048
     Dates: start: 20080205, end: 20110209
  2. OLICARD [Concomitant]
     Indication: MYOCARDIAL ISCHAEMIA
     Route: 048
     Dates: start: 20080205
  3. SODIUM BICARBONATE [Concomitant]
     Indication: METABOLIC ACIDOSIS
     Dosage: APPROXIMATELY 8 GRAMS PER DAY
     Dates: start: 20080205
  4. AMOKSIKLAV [Concomitant]
     Indication: PROPHYLAXIS
     Dosage: DAILY DOSE: 2GM
     Route: 048
     Dates: start: 20110207, end: 20110210
  5. ZEMPLAR [Suspect]
     Indication: HYPERPARATHYROIDISM SECONDARY
     Route: 048
     Dates: start: 20101111, end: 20110208
  6. CARVEDILOL [Concomitant]
     Indication: HYPERTENSION
     Dosage: DAILY DOSE: 25MG
     Route: 048
     Dates: start: 20080205
  7. ASPIRIN [Concomitant]
     Indication: ANTICOAGULANT THERAPY
     Route: 048
     Dates: start: 20060101
  8. CALCIUM CARBONATE [Suspect]
     Indication: HYPERPHOSPHATAEMIA
     Dosage: APPROXIMATELY 4 GRAMS 3 TIMES A DAY
     Route: 048
     Dates: start: 20080920, end: 20110208
  9. PENTOXIFILIN [Concomitant]
     Indication: ARTERIAL DISORDER
  10. AMLODIPINE [Concomitant]
     Indication: HYPERTENSION
     Dosage: DAILY DOSE: 10MG
     Route: 048
     Dates: start: 20090615
  11. CLONIDINE [Concomitant]
     Indication: HYPERTENSION
     Route: 048
     Dates: start: 20101022
  12. NEFRIX [Concomitant]
     Indication: HYPERTENSION
     Dosage: 25MG DAILY
     Route: 048
     Dates: start: 20080528, end: 20110209
  13. PENTOXIFILIN [Concomitant]
     Indication: ARTERIOSCLEROSIS
     Dosage: DAILY DOSE: 800MG
     Route: 048
     Dates: start: 20091001
  14. FUROSEMID [Concomitant]
     Dosage: DAILY DOSE: 120MG
     Route: 048
     Dates: start: 20110210
  15. SIMVASTATIN [Concomitant]
     Indication: HYPERCHOLESTEROLAEMIA
     Route: 048
     Dates: start: 20060101

REACTIONS (3)
  - GLOMERULAR FILTRATION RATE DECREASED [None]
  - RENAL FAILURE CHRONIC [None]
  - HYPERCALCAEMIA [None]
